FAERS Safety Report 14940759 (Version 2)
Quarter: 2018Q4

REPORT INFORMATION
  Report Type: Report from Study
  Country: GB (occurrence: GB)
  Receive Date: 20180525
  Receipt Date: 20181227
  Transmission Date: 20190204
  Serious: Yes (Hospitalization)
  Sender: FDA-Public Use
  Company Number: GB-UCBSA-2018022550

PATIENT
  Age: 49 Year
  Sex: Female

DRUGS (3)
  1. CERTOLIZUMAB PEGOL PSA AUTOCLICKS [Suspect]
     Active Substance: CERTOLIZUMAB PEGOL
     Indication: PSORIATIC ARTHROPATHY
     Dosage: 400 MG, EV 2 WEEKS(QOW)
     Route: 058
     Dates: start: 201703
  2. CERTOLIZUMAB PEGOL PSA AUTOCLICKS [Suspect]
     Active Substance: CERTOLIZUMAB PEGOL
     Indication: CROHN^S DISEASE
     Dosage: 200 MG, EV 2 WEEKS(QOW)
     Route: 058
  3. CERTOLIZUMAB PEGOL PSA AUTOCLICKS [Suspect]
     Active Substance: CERTOLIZUMAB PEGOL
     Indication: OFF LABEL USE

REACTIONS (2)
  - Intestinal resection [Unknown]
  - Off label use [Unknown]

NARRATIVE: CASE EVENT DATE: 201703
